FAERS Safety Report 19203339 (Version 3)
Quarter: 2021Q2

REPORT INFORMATION
  Report Type: Report from Study
  Country: AT (occurrence: AT)
  Receive Date: 20210503
  Receipt Date: 20210628
  Transmission Date: 20210717
  Serious: Yes (Hospitalization, Other)
  Sender: FDA-Public Use
  Company Number: AT-CELLTRION INC.-2019AT028754

PATIENT

DRUGS (74)
  1. TRASTUZUMAB (UNKNOWN) [Suspect]
     Active Substance: TRASTUZUMAB
     Indication: HER2 POSITIVE BREAST CANCER
     Dosage: 378 MG, EVERY 3 WEEKS; MOST RECENT DOSE WAS RECEIVED ON 09/JAN/2019.
     Route: 042
     Dates: start: 20181123, end: 20181123
  2. TRASTUZUMAB (UNKNOWN) [Suspect]
     Active Substance: TRASTUZUMAB
     Dosage: 378 MG, EVERY 3 WEEKS; LAST DOSE WAS RECEIVED ON 09/JAN/2019.
     Route: 042
     Dates: start: 20181214, end: 20190109
  3. ABRAXANE [Suspect]
     Active Substance: PACLITAXEL
     Indication: HER2 POSITIVE BREAST CANCER
     Dosage: 177.17 MG; DOSE ON 08/MAY/2018 DOSE ON 08/MAY/2018MOST RECENT DOSE PRIOR TO THE EVENT: 16/JAN/2019
     Route: 042
     Dates: start: 20180416
  4. CAPECITABINE. [Suspect]
     Active Substance: CAPECITABINE
     Indication: HER2 POSITIVE BREAST CANCER
     Dosage: 500 MG, OTHER
     Route: 048
     Dates: start: 20191126, end: 20191218
  5. PACLITAXEL. [Suspect]
     Active Substance: PACLITAXEL
     Dosage: 177.17 MG, 1/WEEK
     Route: 042
     Dates: start: 20180416, end: 20180508
  6. BEPANTHEN [DEXPANTHENOL] [Concomitant]
     Active Substance: DEXPANTHENOL
     Indication: CONJUNCTIVITIS
     Dosage: UNK
     Route: 065
     Dates: start: 20180619
  7. BEPANTHEN [DEXPANTHENOL] [Concomitant]
     Active Substance: DEXPANTHENOL
     Dosage: UNK
     Route: 065
     Dates: start: 20180725
  8. DEXAMETHASONE. [Concomitant]
     Active Substance: DEXAMETHASONE
     Dosage: UNK
     Dates: start: 20190628, end: 20190830
  9. OCTENISEPT [OCTENIDINE HYDROCHLORIDE;PHENOXYETHANOL] [Concomitant]
     Indication: ONYCHOLYSIS
     Dosage: UNK
     Route: 065
     Dates: start: 20180725
  10. TRASTUZUMAB (UNKNOWN) [Suspect]
     Active Substance: TRASTUZUMAB
     Dosage: 378 MG EVERY 3 WEEKS
     Route: 042
     Dates: start: 20181102, end: 20181123
  11. TRASTUZUMAB (UNKNOWN) [Suspect]
     Active Substance: TRASTUZUMAB
     Dosage: 378 MG EVERY 3 WEEKS; MOST RECENT DOSE WAS RECEIVED ON 09 JAN 2019
     Route: 041
     Dates: start: 20181123
  12. CYCLOPHOSPHAMIDE. [Suspect]
     Active Substance: CYCLOPHOSPHAMIDE
     Dosage: 50 MG, QD
     Route: 048
     Dates: start: 20200219, end: 20200309
  13. PACLITAXEL. [Suspect]
     Active Substance: PACLITAXEL
     Dosage: 172.67 MG, 1/WEEK
     Route: 042
     Dates: start: 20180515, end: 20180515
  14. PACLITAXEL. [Suspect]
     Active Substance: PACLITAXEL
     Dosage: 147.76 MG, 1/WEEK
     Route: 042
     Dates: start: 20180522, end: 20180529
  15. PERTUZUMAB. [Suspect]
     Active Substance: PERTUZUMAB
     Dosage: 420 MG EVERY 3 WEEKS
     Route: 042
     Dates: start: 20181214, end: 20190109
  16. TAXOL [Suspect]
     Active Substance: PACLITAXEL
     Indication: HER2 POSITIVE BREAST CANCER
     Dosage: 147.76 MG, WEEKLY; RECENT DOSE ON 09/APR/2018
     Route: 042
     Dates: start: 20180328, end: 20180409
  17. PANTOLOC [PANTOPRAZOLE] [Concomitant]
     Active Substance: PANTOPRAZOLE SODIUM
     Indication: PRODUCT USED FOR UNKNOWN INDICATION
     Dosage: UNK
     Route: 065
     Dates: start: 20191011
  18. TRASTUZUMAB (UNKNOWN) [Suspect]
     Active Substance: TRASTUZUMAB
     Dosage: 600 MG EVERY 3 WEEKS
     Route: 042
     Dates: start: 20191011, end: 20191011
  19. CAPECITABINE. [Suspect]
     Active Substance: CAPECITABINE
     Dosage: 500 MG, OTHER
     Route: 048
     Dates: start: 20191219
  20. PACLITAXEL. [Suspect]
     Active Substance: PACLITAXEL
     Dosage: 147.76 MG, LAST DOSE 09/APR/2018
     Route: 042
     Dates: start: 20180328
  21. PACLITAXEL. [Suspect]
     Active Substance: PACLITAXEL
     Dosage: 172.67 MG, 1/WEEK
     Route: 042
     Dates: start: 20180605, end: 20180605
  22. PACLITAXEL. [Suspect]
     Active Substance: PACLITAXEL
     Dosage: 171.51 MG, 1/WEEK
     Route: 042
     Dates: start: 20181207, end: 20181221
  23. TRASTUZUMAB EMTANSINE [Suspect]
     Active Substance: ADO-TRASTUZUMAB EMTANSINE
     Dosage: 230.4 MG; EVERY 3 WEEK; DOSE ON 17/MAY/2019
     Route: 042
     Dates: start: 20190131
  24. VINORELBINE [Suspect]
     Active Substance: VINORELBINE TARTRATE
     Indication: HER2 POSITIVE BREAST CANCER
     Dosage: 50 MG
     Route: 065
     Dates: start: 20191011
  25. CAL D VITA [Concomitant]
     Indication: PRODUCT USED FOR UNKNOWN INDICATION
     Dosage: UNK
     Route: 065
     Dates: start: 20190425
  26. OCTENISEPT [OCTENIDINE HYDROCHLORIDE;PHENOXYETHANOL] [Concomitant]
     Dosage: UNK
     Route: 065
     Dates: start: 20180725
  27. TRASTUZUMAB (UNKNOWN) [Suspect]
     Active Substance: TRASTUZUMAB
     Dosage: 378 MG EVERY 3 WEEKS
     Route: 041
     Dates: start: 20181214, end: 20190109
  28. NAVELBINE [Suspect]
     Active Substance: VINORELBINE TARTRATE
     Indication: HER2 POSITIVE BREAST CANCER
     Dosage: 50 UG; RECENT DOSE: 28/OCT/2019
     Route: 048
     Dates: start: 20191011
  29. NAVELBINE [Suspect]
     Active Substance: VINORELBINE TARTRATE
     Indication: BREAST CANCER
     Dosage: 50 UG; RECENT DOSE: 28/OCT/2019
     Route: 048
     Dates: start: 20191011
  30. NERATINIB [Suspect]
     Active Substance: NERATINIB
     Dosage: 1440 MG, QD
     Route: 048
     Dates: start: 20200119, end: 20200129
  31. PERTUZUMAB. [Suspect]
     Active Substance: PERTUZUMAB
     Dosage: 840 MG EVERY 3 WEEK; MOST RECENT DOSE PRIOR TO THE EVENT: 14/DEC/2018
     Route: 065
     Dates: start: 20180328, end: 20180328
  32. PERTUZUMAB. [Suspect]
     Active Substance: PERTUZUMAB
     Dosage: SOLUTION FOR INFUSION
  33. BEPANTHEN EYE [Concomitant]
     Active Substance: DEXPANTHENOL\HYALURONATE SODIUM
     Indication: CONJUNCTIVITIS
     Dosage: UNK
     Route: 065
     Dates: start: 20180619
  34. CAL D VITA [Concomitant]
     Dosage: ONGOING = CHECKED
     Route: 065
     Dates: start: 20190425
  35. CAL D VITA [Concomitant]
     Dosage: ONGOING = CHECKED
     Dates: start: 20190425
  36. TRASTUZUMAB (UNKNOWN) [Suspect]
     Active Substance: TRASTUZUMAB
     Dosage: 408 MG EVERY 3 WEEKS
     Route: 042
     Dates: start: 20180423, end: 20180423
  37. TRASTUZUMAB (UNKNOWN) [Suspect]
     Active Substance: TRASTUZUMAB
     Dosage: 372 MG EVERY 3 WEEKS
     Route: 041
     Dates: start: 20180626, end: 20181010
  38. CYCLOPHOSPHAMIDE. [Suspect]
     Active Substance: CYCLOPHOSPHAMIDE
     Indication: HER2 POSITIVE BREAST CANCER
     Dosage: 2.5 MG, EVERY 0.5 WEEK
     Route: 048
  39. NERATINIB [Suspect]
     Active Substance: NERATINIB
     Dosage: UNK
  40. PACLITAXEL. [Suspect]
     Active Substance: PACLITAXEL
     Indication: HER2 POSITIVE BREAST CANCER
     Dosage: WEEKLY, RECENT DOSE ON 09/APR/2018
     Route: 042
     Dates: start: 20180328, end: 20180409
  41. PACLITAXEL. [Suspect]
     Active Substance: PACLITAXEL
     Dosage: 171.51 MG, 1/WEEK
     Route: 042
     Dates: start: 20181102, end: 20181123
  42. PACLITAXEL. [Suspect]
     Active Substance: PACLITAXEL
     Dosage: 171.51 MG, 1/WEEK
     Route: 042
     Dates: start: 20190109, end: 20190109
  43. TAXOL [Suspect]
     Active Substance: PACLITAXEL
     Indication: BREAST CANCER
     Dosage: 147.76 MG, WEEKLY; LAST DOSE 09/APR/2018
     Route: 042
     Dates: start: 20180328
  44. TRASTUZUMAB EMTANSINE [Suspect]
     Active Substance: ADO-TRASTUZUMAB EMTANSINE
     Indication: HER2 POSITIVE BREAST CANCER
     Dosage: 230.4 MG; EVERY 3 WEEK; DOSE ON 17/MAY/2019, MOST RECENT DOSE PRIOR TO THE EVENT: 28/JUN/2019
     Route: 042
     Dates: start: 20190131, end: 20190517
  45. VINORELBINE [Suspect]
     Active Substance: VINORELBINE TARTRATE
     Indication: HER2 POSITIVE BREAST CANCER
     Dosage: 50 MG; RECENT DOSE: 28/OCT/2019
     Route: 048
     Dates: start: 20191011, end: 20191025
  46. VINORELBINE TARTRATE. [Suspect]
     Active Substance: VINORELBINE TARTRATE
     Indication: HER2 POSITIVE BREAST CANCER
     Dosage: 50 MICROGRAM; RECENT DOSE: 28/OCT/2019
     Route: 048
     Dates: start: 20191011
  47. BEPANTHENE [Concomitant]
     Active Substance: DEXPANTHENOL
     Indication: ONYCHOLYSIS
     Dosage: UNK
     Route: 065
     Dates: start: 20180725
  48. BEPANTHEN [DEXPANTHENOL] [Concomitant]
     Active Substance: DEXPANTHENOL
     Indication: ONYCHOLYSIS
     Dosage: UNK
     Route: 065
     Dates: start: 20180619
  49. KYTRIL [Concomitant]
     Active Substance: GRANISETRON HYDROCHLORIDE
     Indication: PRODUCT USED FOR UNKNOWN INDICATION
     Dosage: ONGOING = NOT CHECKED
     Route: 065
     Dates: start: 20190628, end: 20190830
  50. PANTOLOC [PANTOPRAZOLE] [Concomitant]
     Active Substance: PANTOPRAZOLE SODIUM
     Dosage: ONGOING = CHECKED
     Route: 065
     Dates: start: 20191011
  51. TRASTUZUMAB (UNKNOWN) [Suspect]
     Active Substance: TRASTUZUMAB
     Dosage: 600 MG, EVERY 3 WEEK; MOST RECENT DOSE PRIOR TO THE EVENT: 26 JUN 2018
     Route: 041
     Dates: start: 20180328, end: 20180328
  52. NAB?PACLITAXEL [Suspect]
     Active Substance: PACLITAXEL
     Indication: HER2 POSITIVE BREAST CANCER
     Dosage: 177.17 MG, DOSE ON 08/MAY/2018 MOST RECENT DOSE PRIOR TO THE EVENT: 16/JAN/2019
     Route: 042
     Dates: start: 20180416
  53. NAB?PACLITAXEL [Suspect]
     Active Substance: PACLITAXEL
     Dosage: 177.17 MG, 1/WEEK; MOST RECENT DOSE PRIOR TO THE EVENT: 08/MAY/2018, 16/JAN/2019,
     Route: 042
     Dates: start: 20180416
  54. PERTUZUMAB. [Suspect]
     Active Substance: PERTUZUMAB
     Indication: HER2 POSITIVE BREAST CANCER
     Dosage: 840 MG EVERY 3 WEEK; MOST RECENT DOSE PRIOR TO THE EVENT: 14/DEC/2018
     Route: 042
     Dates: start: 20180328, end: 20180328
  55. PERTUZUMAB. [Suspect]
     Active Substance: PERTUZUMAB
     Dosage: 840 MG EVERY 3 WEEK; MOST RECENT DOSE PRIOR TO THE EVENT: 28/MAR/2018, 14/DEC/2018
     Route: 042
     Dates: start: 20180328
  56. PERTUZUMAB. [Suspect]
     Active Substance: PERTUZUMAB
     Dosage: 420 MG EVERY 3 WEEKS
     Route: 042
     Dates: start: 20180423, end: 20180423
  57. DEXAMETHASONE. [Concomitant]
     Active Substance: DEXAMETHASONE
     Dosage: UNK
     Route: 065
     Dates: start: 20190628, end: 20190830
  58. TRASTUZUMAB (UNKNOWN) [Suspect]
     Active Substance: TRASTUZUMAB
     Indication: HER2 POSITIVE BREAST CANCER
     Dosage: 600 MG, EVERY 3 WEEK; MOST RECENT DOSE PRIOR TO THE EVENT: 11 OCT 2019, 28 MAR 2018
     Route: 041
     Dates: start: 20180328
  59. TRASTUZUMAB (UNKNOWN) [Suspect]
     Active Substance: TRASTUZUMAB
     Dosage: 384 MG EVERY 3 WEEKS
     Route: 042
     Dates: start: 20180515, end: 20180515
  60. PACLITAXEL. [Suspect]
     Active Substance: PACLITAXEL
     Dosage: 170.35 MG, 1/WEEK
     Route: 042
     Dates: start: 20180626, end: 20180718
  61. TRASTUZUMAB EMTANSINE [Suspect]
     Active Substance: ADO-TRASTUZUMAB EMTANSINE
     Dosage: SOLUTION FOR INFUSION
  62. VINORELBINE [Suspect]
     Active Substance: VINORELBINE TARTRATE
     Dosage: 50 MG RECENT DOSE: 28/OCT/2019
     Route: 048
     Dates: start: 20191011
  63. BEPANTHEN [DEXPANTHENOL] [Concomitant]
     Active Substance: DEXPANTHENOL
     Dosage: UNK
     Route: 065
     Dates: start: 20180725
  64. ENTEROBENE [Concomitant]
     Dosage: UNK
     Dates: start: 20200108
  65. XGEVA [Concomitant]
     Active Substance: DENOSUMAB
     Dosage: UNK
     Dates: start: 20191219
  66. TRASTUZUMAB (UNKNOWN) [Suspect]
     Active Substance: TRASTUZUMAB
     Dosage: 600 MG, EVERY 3 WEEK; MOST RECENT DOSE PRIOR TO THE EVENT: 11 OCT 2019
     Route: 042
     Dates: start: 20180328, end: 20180328
  67. ABRAXANE [Suspect]
     Active Substance: PACLITAXEL
     Indication: BREAST CANCER
     Dosage: 177.17 MG, 1/WEEK; MOST RECENT DOSE PRIOR TO THE EVENT: 08/MAY/2018, 16/JAN/2019,
     Route: 042
     Dates: start: 20180416
  68. METHOTREXATE. [Suspect]
     Active Substance: METHOTREXATE
     Indication: HER2 POSITIVE BREAST CANCER
     Dosage: 2.5 MG, EVERY 0.5 WEEK
     Route: 048
     Dates: start: 20200219, end: 20200309
  69. NERATINIB [Suspect]
     Active Substance: NERATINIB
     Indication: HER2 POSITIVE BREAST CANCER
     Dosage: 1440 MG, QD
     Route: 048
     Dates: start: 20200108, end: 20200118
  70. PACLITAXEL. [Suspect]
     Active Substance: PACLITAXEL
     Dosage: 177.17 MG, 1/WEEK
     Route: 042
     Dates: start: 20180612, end: 20180612
  71. PACLITAXEL. [Suspect]
     Active Substance: PACLITAXEL
     Dosage: 172.67 MG, 1/WEEK
     Route: 042
     Dates: start: 20190102, end: 20190102
  72. PACLITAXEL. [Suspect]
     Active Substance: PACLITAXEL
     Dosage: 172.67 MG, 1/WEEK
     Route: 042
     Dates: start: 20190116, end: 20190116
  73. PERTUZUMAB. [Suspect]
     Active Substance: PERTUZUMAB
     Dosage: 840 MG EVERY 3 WEEK; MOST RECENT DOSE PRIOR TO THE EVENT: 28/MAR/2018, 14/DEC/2018
     Route: 042
     Dates: start: 20180328
  74. BEPANTHENE [Concomitant]
     Active Substance: DEXPANTHENOL
     Dosage: UNK
     Dates: start: 20180725

REACTIONS (9)
  - Febrile neutropenia [Recovered/Resolved]
  - Skin lesion [Recovering/Resolving]
  - Pain of skin [Recovered/Resolved]
  - Off label use [Unknown]
  - Stomatitis [Recovered/Resolved]
  - Overdose [Unknown]
  - Breast cancer metastatic [Recovering/Resolving]
  - Tumour pain [Recovered/Resolved]
  - Intentional product use issue [Unknown]

NARRATIVE: CASE EVENT DATE: 20190920
